FAERS Safety Report 18326603 (Version 1)
Quarter: 2020Q3

REPORT INFORMATION
  Report Type: Spontaneous
  Country: US (occurrence: US)
  Receive Date: 20200930
  Receipt Date: 20200930
  Transmission Date: 20201103
  Serious: No
  Sender: FDA-Public Use
  Company Number: US-009507513-2009USA010882

PATIENT
  Sex: Female

DRUGS (1)
  1. ALBUTEROL SULFATE. [Suspect]
     Active Substance: ALBUTEROL SULFATE
     Dosage: UNK
     Dates: start: 20200629

REACTIONS (3)
  - Product dose omission issue [Unknown]
  - Device malfunction [Unknown]
  - Poor quality device used [Unknown]

NARRATIVE: CASE EVENT DATE: 2020
